FAERS Safety Report 14074798 (Version 1)
Quarter: 2017Q4

REPORT INFORMATION
  Report Type: Other
  Country: US (occurrence: US)
  Receive Date: 20171011
  Receipt Date: 20171011
  Transmission Date: 20180321
  Serious: Yes (Hospitalization, Other)
  Sender: FDA-Public Use
  Company Number: US-ALSI-201700334

PATIENT
  Age: 54 Year
  Sex: Male

DRUGS (1)
  1. NITROUS OXIDE. [Suspect]
     Active Substance: NITROUS OXIDE
     Indication: DRUG ABUSE
     Route: 003

REACTIONS (3)
  - Frostbite [Recovered/Resolved]
  - Disorientation [Recovered/Resolved]
  - Drug use disorder [Unknown]
